FAERS Safety Report 16155039 (Version 1)
Quarter: 2019Q2

REPORT INFORMATION
  Report Type: Report from Study
  Country: NL (occurrence: NL)
  Receive Date: 20190403
  Receipt Date: 20190403
  Transmission Date: 20190711
  Serious: Yes (Death)
  Sender: FDA-Public Use
  Company Number: NL-MYLANLABS-2019M1031081

PATIENT
  Age: 46 Year
  Sex: Male

DRUGS (1)
  1. PREDNISOLONE. [Suspect]
     Active Substance: PREDNISOLONE
     Indication: CHOLANGITIS SCLEROSING
     Dosage: RECEIVED FOR MORE THAN 2 YEARS
     Route: 065

REACTIONS (1)
  - Anaplastic large cell lymphoma T- and null-cell types stage II [Fatal]
